FAERS Safety Report 8782440 (Version 1)
Quarter: 2012Q4

REPORT INFORMATION
  Report Type: 
  Country: US (occurrence: US)
  Receive Date: 20120913
  Receipt Date: 20120913
  Transmission Date: 20130627
  Serious: Yes (Other)
  Sender: FDA-Public Use
  Company Number: US-ACTELION-A-NJ2011-58031

PATIENT
  Age: 60 Year
  Sex: Female

DRUGS (4)
  1. TRACLEER [Suspect]
     Indication: PULMONARY ARTERIAL HYPERTENSION
     Dosage: 125 mg, UNK
     Route: 048
     Dates: start: 2011
  2. TRACLEER [Suspect]
     Dosage: UNK
     Route: 048
     Dates: end: 2011
  3. COUMADIN [Concomitant]
  4. ASPIRIN [Concomitant]

REACTIONS (4)
  - Surgery [Unknown]
  - Back pain [Unknown]
  - Palpitations [Unknown]
  - Pain in extremity [Unknown]
